FAERS Safety Report 10404801 (Version 1)
Quarter: 2014Q3

REPORT INFORMATION
  Report Type: Report from Study
  Country: US (occurrence: US)
  Receive Date: 20140825
  Receipt Date: 20140825
  Transmission Date: 20150326
  Serious: Yes (Other)
  Sender: FDA-Public Use
  Company Number: US-ROCHE-1453384

PATIENT
  Age: 67 Year
  Sex: Female

DRUGS (4)
  1. PEMETREXED [Suspect]
     Active Substance: PEMETREXED
     Indication: NON-SMALL CELL LUNG CANCER
     Route: 065
  2. BEVACIZUMAB [Suspect]
     Active Substance: BEVACIZUMAB
     Dosage: CONTINUED 5 DOSES, AFTER CESSATION OF VEGF THERAPY
     Route: 065
  3. CARBOPLATIN. [Suspect]
     Active Substance: CARBOPLATIN
     Indication: NON-SMALL CELL LUNG CANCER
     Route: 065
  4. BEVACIZUMAB [Suspect]
     Active Substance: BEVACIZUMAB
     Indication: NON-SMALL CELL LUNG CANCER
     Route: 065

REACTIONS (7)
  - Renal injury [Unknown]
  - Tubulointerstitial nephritis [Unknown]
  - Renal failure acute [Unknown]
  - Renal tubular disorder [Unknown]
  - Renal impairment [Recovered/Resolved]
  - Hypertension [Not Recovered/Not Resolved]
  - Renal ischaemia [Unknown]
